FAERS Safety Report 7371095-0 (Version None)
Quarter: 2011Q1

REPORT INFORMATION
  Report Type: 
  Country: None (occurrence: None)
  Receive Date: 20110324
  Receipt Date: 20110310
  Transmission Date: 20110831
  Serious: Yes (Hospitalization, Other)
  Sender: FDA-Public Use
  Company Number: FR-JNJFOC-20110106407

PATIENT
  Age: 31 Year
  Sex: Male

DRUGS (6)
  1. METHOTREXATE [Concomitant]
  2. CORTICOSTEROID NOS [Concomitant]
  3. REMICADE [Suspect]
     Indication: PRODUCT USED FOR UNKNOWN INDICATION
     Route: 042
  4. PREVISCAN (FLUINDIONE) [Concomitant]
  5. SOLUPRED [Concomitant]
  6. VALPROATE SODIUM [Concomitant]

REACTIONS (1)
  - TUBERCULOSIS [None]
